FAERS Safety Report 12212075 (Version 1)
Quarter: 2016Q1

REPORT INFORMATION
  Report Type: Spontaneous
  Country: US (occurrence: US)
  Receive Date: 20160325
  Receipt Date: 20160325
  Transmission Date: 20160526
  Serious: Yes (Other)
  Sender: FDA-Public Use
  Company Number: US-SA-2015SA173585

PATIENT
  Age: 45 Year
  Sex: Female

DRUGS (7)
  1. PAXIL [Concomitant]
     Active Substance: PAROXETINE HYDROCHLORIDE
  2. HYDROXYZINE HYDROCHLORIDE. [Concomitant]
     Active Substance: HYDROXYZINE HYDROCHLORIDE
     Indication: ANXIETY
     Dates: start: 20151210, end: 20160311
  3. AMPYRA [Concomitant]
     Active Substance: DALFAMPRIDINE
  4. AUBAGIO [Suspect]
     Active Substance: TERIFLUNOMIDE
     Indication: MULTIPLE SCLEROSIS
     Route: 048
  5. BIOTIN [Concomitant]
     Active Substance: BIOTIN
  6. VITAMIN E [Concomitant]
     Active Substance: .ALPHA.-TOCOPHEROL
  7. OMEGA 3 [Concomitant]
     Active Substance: OMEGA-3 FATTY ACIDS

REACTIONS (14)
  - Dizziness [Unknown]
  - Paraesthesia [Unknown]
  - Hemiparesis [Unknown]
  - Skin haemorrhage [Unknown]
  - Coordination abnormal [Unknown]
  - Balance disorder [Unknown]
  - Memory impairment [Unknown]
  - Hypoaesthesia [Unknown]
  - Euphoric mood [Unknown]
  - Gait disturbance [Unknown]
  - Scratch [Unknown]
  - Energy increased [Unknown]
  - Cognitive disorder [Unknown]
  - Fall [Unknown]

NARRATIVE: CASE EVENT DATE: 20151208
